FAERS Safety Report 14561993 (Version 2)
Quarter: 2018Q1

REPORT INFORMATION
  Report Type: Spontaneous
  Country: US (occurrence: US)
  Receive Date: 20180222
  Receipt Date: 20180327
  Transmission Date: 20180509
  Serious: No
  Sender: FDA-Public Use
  Company Number: US-LUNDBECK-DKLU2043239

PATIENT
  Age: 66 Year
  Sex: Female

DRUGS (3)
  1. NORTHERA [Suspect]
     Active Substance: DROXIDOPA
     Dosage: 200MG AND 100 MG TO MAKE 300MG TID
     Route: 048
     Dates: start: 20180108, end: 20180228
  2. NORTHERA [Suspect]
     Active Substance: DROXIDOPA
     Indication: ORTHOSTATIC HYPOTENSION
     Route: 048
     Dates: start: 201801
  3. NORTHERA [Suspect]
     Active Substance: DROXIDOPA
     Dosage: 200MG AND 100 MG TO MAKE 300MG TID
     Route: 048
     Dates: start: 20180108, end: 20180228

REACTIONS (1)
  - Drug ineffective [Unknown]

NARRATIVE: CASE EVENT DATE: 201801
